FAERS Safety Report 4999380-8 (Version None)
Quarter: 2006Q2

REPORT INFORMATION
  Report Type: 
  Country: None (occurrence: None)
  Receive Date: 20060509
  Receipt Date: 20060501
  Transmission Date: 20061013
  Serious: Yes (Death)
  Sender: FDA-Public Use
  Company Number: 2006BI001344

PATIENT
  Age: 61 Year
  Sex: Male

DRUGS (11)
  1. AVONEX [Suspect]
     Indication: MULTIPLE SCLEROSIS
     Dosage: 30 UG;QW;IM
     Route: 030
     Dates: start: 20030801, end: 20041201
  2. KLONOPIN [Concomitant]
  3. AMANTADINE HCL [Concomitant]
  4. ENALAPRIL [Concomitant]
  5. ASPIRIN [Concomitant]
  6. M.V.I. [Concomitant]
  7. MEGACE [Concomitant]
  8. COMBIVENT [Concomitant]
  9. ATIVAN [Concomitant]
  10. MAGNESIUM SULFATE [Concomitant]
  11. PRAVACHOL [Concomitant]

REACTIONS (1)
  - LUNG NEOPLASM MALIGNANT [None]
